FAERS Safety Report 10218899 (Version 1)
Quarter: 2014Q2

REPORT INFORMATION
  Report Type: Spontaneous
  Country: US (occurrence: US)
  Receive Date: 20140605
  Receipt Date: 20140605
  Transmission Date: 20141212
  Serious: No
  Sender: FDA-Public Use
  Company Number: US-009507513-1405USA015597

PATIENT
  Sex: Female

DRUGS (3)
  1. CLARITIN CHEWABLE TABLETS [Suspect]
     Indication: HYPERSENSITIVITY
     Dosage: DAILY FOR A FEW WEEKS
     Route: 048
  2. BENADRYL [Concomitant]
  3. ALLEGRA [Concomitant]

REACTIONS (1)
  - Drug ineffective [Unknown]
